FAERS Safety Report 9513392 (Version 1)
Quarter: 2013Q3

REPORT INFORMATION
  Report Type: Spontaneous
  Country: US (occurrence: US)
  Receive Date: 20130910
  Receipt Date: 20130910
  Transmission Date: 20140515
  Serious: No
  Sender: FDA-Public Use
  Company Number: US-TARO-2012P1050341

PATIENT
  Age: 91 Year
  Sex: Female
  Weight: 58.97 kg

DRUGS (17)
  1. WARFARIN SODIUM TABLETS USP 2MG [Suspect]
     Dates: start: 2005, end: 201206
  2. WARFARIN SODIUM TABLETS USP 2MG [Suspect]
     Route: 048
     Dates: start: 201206
  3. WARFARIN SODIUM TABLETS USP 2MG [Suspect]
     Route: 048
     Dates: start: 201206
  4. LEVOTHYROXINE [Concomitant]
  5. LUNESTA [Concomitant]
  6. PREMARIN [Concomitant]
  7. PRILOSEC [Concomitant]
  8. CARDIZEM [Concomitant]
  9. ATIVAN [Concomitant]
  10. TRIAMTERENE [Concomitant]
  11. METAMUCIL [Concomitant]
  12. PHILLIPS^ MILK OF MAGNESIA [Concomitant]
  13. GLUCOSAMINE [Concomitant]
  14. VITAMINS B, C, D, A, E [Concomitant]
  15. MULTIVITAMINS [Concomitant]
  16. ESTROFACTORS [Concomitant]
  17. BIO-D-MULSION [Concomitant]

REACTIONS (2)
  - International normalised ratio decreased [Not Recovered/Not Resolved]
  - Anxiety [Not Recovered/Not Resolved]
